FAERS Safety Report 5129445-1 (Version None)
Quarter: 2006Q4

REPORT INFORMATION
  Report Type: 
  Country: None (occurrence: None)
  Receive Date: 20061012
  Receipt Date: 20061002
  Transmission Date: 20070319
  Serious: Yes (Death, Hospitalization)
  Sender: FDA-Public Use
  Company Number: 163-20785-06080931

PATIENT
  Age: 43 Year
  Sex: Male

DRUGS (1)
  1. THALOMID [Suspect]
     Indication: MULTIPLE MYELOMA
     Dosage: 50 MG, 1 IN 1 D, ORAL
     Route: 048
     Dates: start: 20050526, end: 20060601

REACTIONS (3)
  - GRAFT VERSUS HOST DISEASE [None]
  - INTESTINAL PERFORATION [None]
  - MUCORMYCOSIS [None]
